FAERS Safety Report 8146984-X (Version None)
Quarter: 2012Q1

REPORT INFORMATION
  Report Type: 
  Country: None (occurrence: None)
  Receive Date: 20120217
  Receipt Date: 20120210
  Transmission Date: 20120608
  Serious: Yes (Other)
  Sender: FDA-Public Use
  Company Number: US-ASTRAZENECA-2012SE09221

PATIENT
  Sex: Female

DRUGS (8)
  1. BUSPAR [Concomitant]
     Dosage: EVERY FOUR HOURS
  2. WELLBUTRIN [Concomitant]
  3. SEROQUEL [Suspect]
     Indication: BIPOLAR I DISORDER
     Route: 048
  4. SEROQUEL [Suspect]
     Indication: ANXIETY
     Route: 048
  5. CELEXA [Concomitant]
     Dosage: DAILY
  6. NEXIUM [Suspect]
     Indication: GASTROOESOPHAGEAL REFLUX DISEASE
     Route: 048
  7. ATEROL [Concomitant]
     Dosage: EVERY THREE DAYS
  8. CLOZAPINE [Concomitant]
     Dosage: EVERY FOUR HOURS

REACTIONS (4)
  - SUICIDAL IDEATION [None]
  - OFF LABEL USE [None]
  - FATIGUE [None]
  - SOMNOLENCE [None]
